FAERS Safety Report 8849018 (Version 1)
Quarter: 2012Q4

REPORT INFORMATION
  Report Type: 
  Country: US (occurrence: US)
  Receive Date: 20121019
  Receipt Date: 20121019
  Transmission Date: 20130627
  Serious: Yes (Hospitalization)
  Sender: FDA-Public Use
  Company Number: US-BAYER-2012-109176

PATIENT
  Age: 85 Year
  Sex: Female

DRUGS (2)
  1. AVELOX [Suspect]
  2. DULERA [Concomitant]
     Indication: BRONCHOSPASM
     Dosage: 1 puff twice a day
     Dates: start: 20121009

REACTIONS (2)
  - Anaphylactic reaction [None]
  - Throat tightness [None]
